FAERS Safety Report 6808369-5 (Version None)
Quarter: 2010Q2

REPORT INFORMATION
  Report Type: 
  Country: None (occurrence: None)
  Receive Date: 20100629
  Receipt Date: 20090613
  Transmission Date: 20101027
  Serious: No
  Sender: FDA-Public Use
  Company Number: US-PFIZER INC-2009195924

PATIENT
  Sex: Female

DRUGS (1)
  1. TIKOSYN [Suspect]
     Dosage: UNK

REACTIONS (2)
  - DRUG PRESCRIBING ERROR [None]
  - MUSCULOSKELETAL PAIN [None]
